FAERS Safety Report 15398182 (Version 5)
Quarter: 2019Q2

REPORT INFORMATION
  Report Type: Report from Study
  Country: JP (occurrence: JP)
  Receive Date: 20180918
  Receipt Date: 20190521
  Transmission Date: 20190711
  Serious: Yes (Hospitalization)
  Sender: FDA-Public Use
  Company Number: JP-UCBSA-2018041314

PATIENT
  Age: 51 Year
  Sex: Male
  Weight: 67.3 kg

DRUGS (6)
  1. AMLODIPINE BESILATE [Concomitant]
     Active Substance: AMLODIPINE BESYLATE
     Indication: HYPERTENSION
     Dosage: 5 MG, ONCE DAILY (QD)
     Route: 048
     Dates: start: 20180518, end: 20180926
  2. BONALFA [Concomitant]
     Active Substance: TACALCITOL
     Indication: PSORIASIS
     Dosage: U, (1 APPLICATION) ONCE DAILY (QD)
     Route: 061
     Dates: start: 20170816, end: 20180905
  3. CERTOLIZUMAB PEGOL VS PLACEBO [Suspect]
     Active Substance: CERTOLIZUMAB PEGOL
     Indication: PSORIASIS
     Dosage: 400 MG, EV 2 WEEKS(QOW)
     Route: 058
     Dates: start: 20170731, end: 20180717
  4. VOALLA [Concomitant]
     Indication: PSORIASIS
     Dosage: UNK, (1 APPLICATION) ONCE DAILY (QD)
     Route: 061
     Dates: start: 20170816, end: 20180905
  5. NEORAL [Concomitant]
     Active Substance: CYCLOSPORINE
     Indication: PUSTULAR PSORIASIS
     Dosage: 100 MG, ONCE DAILY (QD)
     Route: 048
     Dates: start: 20180618, end: 20180810
  6. NEORAL [Concomitant]
     Active Substance: CYCLOSPORINE
     Dosage: 150 MG, ONCE DAILY (QD)
     Route: 048
     Dates: start: 20180811, end: 20181004

REACTIONS (1)
  - Pustular psoriasis [Recovered/Resolved]

NARRATIVE: CASE EVENT DATE: 20180618
